FAERS Safety Report 7765220-7 (Version None)
Quarter: 2011Q3

REPORT INFORMATION
  Report Type: 
  Country: None (occurrence: None)
  Receive Date: 20110921
  Receipt Date: 20110914
  Transmission Date: 20111222
  Serious: Yes (Death)
  Sender: FDA-Public Use
  Company Number: US-GLAXOSMITHKLINE-A0943387A

PATIENT
  Age: 82 Year
  Sex: Male

DRUGS (2)
  1. VIDAZA [Concomitant]
     Dates: end: 20100817
  2. PROMACTA [Suspect]
     Indication: THROMBOCYTOPENIA
     Dates: start: 20100930

REACTIONS (1)
  - MYELODYSPLASTIC SYNDROME [None]
